FAERS Safety Report 6958340-8 (Version None)
Quarter: 2010Q3

REPORT INFORMATION
  Report Type: 
  Country: None (occurrence: None)
  Receive Date: 20100831
  Receipt Date: 20100823
  Transmission Date: 20110219
  Serious: Yes (Hospitalization)
  Sender: FDA-Public Use
  Company Number: B0672295A

PATIENT
  Sex: Male

DRUGS (1)
  1. CEFUROXIME [Suspect]
     Indication: PRODUCT USED FOR UNKNOWN INDICATION
     Route: 065

REACTIONS (3)
  - ARTHRITIS [None]
  - ERYTHEMA [None]
  - LYMPHADENOPATHY [None]
